FAERS Safety Report 11271393 (Version 2)
Quarter: 2015Q3

REPORT INFORMATION
  Report Type: Report from Study
  Country: US (occurrence: US)
  Receive Date: 20150714
  Receipt Date: 20150722
  Transmission Date: 20151125
  Serious: Yes (Other)
  Sender: FDA-Public Use
  Company Number: PHEH2015US002046

PATIENT
  Sex: Female
  Weight: 99.77 kg

DRUGS (2)
  1. NEURONTIN [Suspect]
     Active Substance: GABAPENTIN
     Indication: PAIN IN EXTREMITY
     Dosage: UNK, 3 WEEKS AGO
     Route: 065
  2. GILENYA [Suspect]
     Active Substance: FINGOLIMOD HYDROCHLORIDE
     Indication: MULTIPLE SCLEROSIS
     Dosage: 0.5 MG, QD
     Route: 048
     Dates: start: 20141009

REACTIONS (5)
  - Ichthyosis [Recovering/Resolving]
  - Somnolence [Unknown]
  - Pain in extremity [Unknown]
  - Skin exfoliation [Recovering/Resolving]
  - Feeling abnormal [Unknown]
